FAERS Safety Report 5389167-9 (Version None)
Quarter: 2007Q3

REPORT INFORMATION
  Report Type: 
  Country: None (occurrence: None)
  Receive Date: 20070713
  Receipt Date: 20070713
  Transmission Date: 20080115
  Serious: Yes (Life-Threatening)
  Sender: FDA-Public Use
  Company Number: None

PATIENT
  Age: 50 Year
  Sex: Female
  Weight: 101.6057 kg

DRUGS (2)
  1. VERAPAMIL [Suspect]
     Indication: MIGRAINE PROPHYLAXIS
     Dosage: 240MG 1 PER DAY PO
     Route: 048
     Dates: start: 20070522, end: 20070525
  2. VERAPAMIL [Suspect]
     Dosage: 180MG 1 PER DAY PO
     Route: 048
     Dates: start: 20070526, end: 20070609

REACTIONS (8)
  - ABNORMAL BEHAVIOUR [None]
  - CRYING [None]
  - DISTURBANCE IN ATTENTION [None]
  - IMPAIRED DRIVING ABILITY [None]
  - LOSS OF CONSCIOUSNESS [None]
  - OEDEMA PERIPHERAL [None]
  - SOMNOLENCE [None]
  - URINARY INCONTINENCE [None]
